FAERS Safety Report 10903221 (Version 4)
Quarter: 2015Q4

REPORT INFORMATION
  Report Type: Report from Study
  Country: DK (occurrence: DK)
  Receive Date: 20150311
  Receipt Date: 20151105
  Transmission Date: 20160304
  Serious: Yes (Other)
  Sender: FDA-Public Use
  Company Number: DK-BEH-2015049538

PATIENT
  Age: 38 Year
  Sex: Female
  Weight: 68 kg

DRUGS (6)
  1. PRIVIGEN [Suspect]
     Active Substance: HUMAN IMMUNOGLOBULIN G
     Dates: start: 20130705
  2. LEVOTHYROXINE. [Concomitant]
     Active Substance: LEVOTHYROXINE
     Indication: PREGNANCY
     Dosage: STOP DATE: ??-???-2014
     Route: 048
     Dates: start: 20130710, end: 2014
  3. PRIVIGEN [Suspect]
     Active Substance: HUMAN IMMUNOGLOBULIN G
     Indication: PROPHYLAXIS
     Dates: start: 20130725
  4. PRIVIGEN [Suspect]
     Active Substance: HUMAN IMMUNOGLOBULIN G
     Dates: start: 20130711
  5. PRIVIGEN [Suspect]
     Active Substance: HUMAN IMMUNOGLOBULIN G
     Dates: start: 20130718
  6. LEVOTHYROXINE. [Concomitant]
     Active Substance: LEVOTHYROXINE
     Indication: ANTI-THYROID ANTIBODY POSITIVE
     Dosage: STOP DATE: ??-???-2014
     Route: 048
     Dates: start: 20130710, end: 2014

REACTIONS (4)
  - Peripheral swelling [Recovered/Resolved]
  - Subclavian vein thrombosis [Recovered/Resolved]
  - Abortion missed [Recovered/Resolved]
  - Exposure during pregnancy [Recovered/Resolved]

NARRATIVE: CASE EVENT DATE: 20130801
